FAERS Safety Report 26196875 (Version 1)
Quarter: 2025Q4

REPORT INFORMATION
  Report Type: Spontaneous
  Country: CN (occurrence: CN)
  Receive Date: 20251224
  Receipt Date: 20251224
  Transmission Date: 20260118
  Serious: Yes (Hospitalization)
  Sender: ROCHE
  Company Number: CN-002147023-NVSC2025CN192296

PATIENT
  Age: 16 Year
  Sex: Male
  Weight: 43 kg

DRUGS (3)
  1. OMALIZUMAB [Suspect]
     Active Substance: OMALIZUMAB
     Indication: Urticaria
     Dosage: 300 MG, EVERY 2 WEEKS
     Route: 058
     Dates: start: 20250730, end: 20250827
  2. DESLORATADINE [Suspect]
     Active Substance: DESLORATADINE
     Indication: Urticaria
     Dosage: 5 MG, QD
     Route: 048
     Dates: start: 20250730, end: 20251002
  3. Compound glycyrrhizin [Concomitant]
     Indication: Urticaria
     Dosage: 2 DOSAGE FORM, TID
     Route: 048
     Dates: start: 20250730, end: 20251002

REACTIONS (13)
  - Drug-induced liver injury [Recovering/Resolving]
  - White blood cell count decreased [Recovering/Resolving]
  - Monocyte percentage increased [Recovering/Resolving]
  - Red cell distribution width increased [Recovering/Resolving]
  - Blood lactic acid increased [Recovering/Resolving]
  - Blood bicarbonate increased [Recovering/Resolving]
  - Blood phosphorus increased [Recovering/Resolving]
  - Gallbladder enlargement [Recovering/Resolving]
  - Erythema [Recovering/Resolving]
  - Pruritus [Recovering/Resolving]
  - Ocular icterus [Recovering/Resolving]
  - Chromaturia [Recovering/Resolving]
  - Abdominal pain upper [Recovering/Resolving]

NARRATIVE: CASE EVENT DATE: 20251002
